FAERS Safety Report 26020440 (Version 1)
Quarter: 2025Q4

REPORT INFORMATION
  Report Type: Spontaneous
  Country: EG (occurrence: EG)
  Receive Date: 20251110
  Receipt Date: 20251110
  Transmission Date: 20260118
  Serious: Yes (Other)
  Sender: HIKMA
  Company Number: EG-HIKMA PHARMACEUTICALS-EG-H14001-25-11800

PATIENT
  Age: 68 Year
  Sex: Male

DRUGS (4)
  1. GEMCITABINE HYDROCHLORIDE [Suspect]
     Active Substance: GEMCITABINE HYDROCHLORIDE
     Indication: Bladder cancer
     Dosage: 1580 MILLIGRAM, 3W (ON DAYS 1 AND 8 EVERY 21 DAYS, CYCLE 1), WEEK 1
     Route: 042
     Dates: start: 20250827
  2. GEMCITABINE HYDROCHLORIDE [Suspect]
     Active Substance: GEMCITABINE HYDROCHLORIDE
     Dosage: 1580 MILLIGRAM, 3W (ON DAYS 1 AND 8 EVERY 21 DAYS, CYCLE 1), WEEK 2
     Route: 042
     Dates: start: 20250903
  3. CISPLATIN [Suspect]
     Active Substance: CISPLATIN
     Indication: Bladder cancer
     Dosage: 79 MILLIGRAM, 3W (EVERY 21 DAY CYCLE 1), WEEK 1
     Route: 041
     Dates: start: 20250827, end: 20250827
  4. CISPLATIN [Suspect]
     Active Substance: CISPLATIN
     Dosage: 79 MILLIGRAM, 3W (EVERY 21 DAYS CYCLE 1), WEEK 2
     Route: 042
     Dates: start: 20250903, end: 20250903

REACTIONS (3)
  - Neutropenia [Recovered/Resolved]
  - Leukopenia [Recovered/Resolved]
  - Blood creatinine increased [Unknown]

NARRATIVE: CASE EVENT DATE: 20250917
